FAERS Safety Report 15688943 (Version 3)
Quarter: 2019Q1

REPORT INFORMATION
  Report Type: Spontaneous
  Country: BR (occurrence: BR)
  Receive Date: 20181205
  Receipt Date: 20190322
  Transmission Date: 20190417
  Serious: Yes (Hospitalization, Other)
  Sender: FDA-Public Use
  Company Number: BR-BRISTOL-MYERS SQUIBB COMPANY-BMS-2018-098368

PATIENT
  Age: 81 Year
  Sex: Male

DRUGS (21)
  1. ELIQUIS [Suspect]
     Active Substance: APIXABAN
     Indication: PRODUCT USED FOR UNKNOWN INDICATION
     Dosage: 2.5 MG, BID
     Route: 048
     Dates: start: 201807
  2. DONEPEZIL HYDROCHLORIDE. [Concomitant]
     Active Substance: DONEPEZIL HYDROCHLORIDE
     Indication: FRONTOTEMPORAL DEMENTIA
     Dosage: 5 MG, BID
     Route: 048
     Dates: start: 2010
  3. FLUIMUCIL [Concomitant]
     Active Substance: ACETYLCYSTEINE
     Indication: SECRETION DISCHARGE
     Dosage: 600 MG, QD
     Route: 048
     Dates: start: 2014
  4. ZOLPIDEM [Concomitant]
     Active Substance: ZOLPIDEM\ZOLPIDEM TARTRATE
     Indication: SLEEP DISORDER
     Dosage: 10 MG, AT BEDTIME
     Route: 065
     Dates: start: 2009
  5. DIOSMIN [Concomitant]
     Active Substance: DIOSMIN
     Indication: HAEMATOMA
     Dosage: 1 DF=900 + 100 MG, DEPENDS ON THE DAY, PRN
     Route: 065
     Dates: start: 2010
  6. ELIQUIS [Suspect]
     Active Substance: APIXABAN
     Indication: PRODUCT USED FOR UNKNOWN INDICATION
     Dosage: 2.5 MG, QD
     Route: 048
     Dates: start: 2018
  7. ESOMEPRAZOLE. [Concomitant]
     Active Substance: ESOMEPRAZOLE MAGNESIUM
     Indication: PRODUCT USED FOR UNKNOWN INDICATION
     Dosage: 20 MG, QD
     Route: 048
     Dates: start: 2014
  8. CORUS                              /00023550/ [Concomitant]
     Indication: PROPHYLAXIS
     Dosage: 25 MG,DAILY 3 YEARS AGO
     Route: 065
  9. SIMETHICONE (DIMETHICONE) [Concomitant]
     Active Substance: DIMETHICONE
     Indication: GASTRIC DISORDER
     Dosage: 2 DF=125 MG, QD
     Route: 065
     Dates: start: 2008
  10. HYLO [Concomitant]
     Indication: EYE LUBRICATION THERAPY
     Dosage: UNK, PRN
     Route: 065
  11. ESCITALOPRAM OXALATE. [Concomitant]
     Active Substance: ESCITALOPRAM OXALATE
     Indication: ANXIETY
     Dosage: 20 MG, QD FROM ONE YEAR AND A HALF AGO
     Route: 048
  12. RIVOTRIL [Suspect]
     Active Substance: CLONAZEPAM
     Indication: PRODUCT USED FOR UNKNOWN INDICATION
     Dosage: UNK
     Route: 065
  13. DIAMICRON [Concomitant]
     Active Substance: GLICLAZIDE
     Indication: DIABETES MELLITUS
     Dosage: UNK
     Route: 048
  14. GLIFAGE [Concomitant]
     Active Substance: METFORMIN HYDROCHLORIDE
     Indication: DIABETES MELLITUS
     Dosage: 500 MG, BID FROM MAR-2018 OR APR-2018
     Route: 048
     Dates: start: 2018
  15. RILUZOL [Concomitant]
     Indication: AMYOTROPHIC LATERAL SCLEROSIS
     Dosage: 5 MG, BID
     Route: 048
     Dates: start: 201809
  16. DOMPERIDONE [Concomitant]
     Active Substance: DOMPERIDONE
     Indication: ABDOMINAL PAIN UPPER
     Dosage: 10 MG, TID
     Route: 065
     Dates: start: 2010
  17. DIAMICRON [Concomitant]
     Active Substance: GLICLAZIDE
     Indication: PRODUCT USED FOR UNKNOWN INDICATION
     Dosage: 60 MG, QD 1 TABLET IN THE MORNING
     Route: 048
     Dates: start: 201804
  18. ONGLYZA [Concomitant]
     Active Substance: SAXAGLIPTIN HYDROCHLORIDE
     Indication: DIABETES MELLITUS
     Dosage: 10 MG, PER DAY
     Route: 048
     Dates: start: 2018
  19. CORUS                              /00023550/ [Concomitant]
     Indication: HYPERTENSION
     Route: 065
  20. MEMANTINE HYDROCHLORIDE. [Concomitant]
     Active Substance: MEMANTINE HYDROCHLORIDE
     Indication: FRONTOTEMPORAL DEMENTIA
     Dosage: 10 MG, BID
     Route: 048
     Dates: start: 2010
  21. VITAMIN B COMPLEX [Concomitant]
     Active Substance: CYANOCOBALAMIN\DEXPANTHENOL\NIACINAMIDE\PYRIDOXINE HYDROCHLORIDE\RIBOFLAVIN 5^-PHOSPHATE SODIUM\THIAMINE HYDROCHLORIDE\VITAMIN B COMPLEX
     Indication: PRODUCT USED FOR UNKNOWN INDICATION
     Dosage: UNK, BID
     Route: 048
     Dates: start: 2008

REACTIONS (13)
  - Dehydration [Unknown]
  - Speech disorder [Recovered/Resolved]
  - Respiratory disorder [Unknown]
  - Somnolence [Recovered/Resolved]
  - Depressed level of consciousness [Recovered/Resolved]
  - Blood creatinine decreased [Not Recovered/Not Resolved]
  - Skin haemorrhage [Not Recovered/Not Resolved]
  - Anxiety [Unknown]
  - Rash macular [Not Recovered/Not Resolved]
  - Panic disorder [Unknown]
  - Aspiration [Recovered/Resolved]
  - Procedural haemorrhage [Not Recovered/Not Resolved]
  - Off label use [Unknown]

NARRATIVE: CASE EVENT DATE: 201808
